FAERS Safety Report 12992235 (Version 2)
Quarter: 2016Q4

REPORT INFORMATION
  Report Type: Spontaneous
  Country: US (occurrence: US)
  Receive Date: 20161201
  Receipt Date: 20161206
  Transmission Date: 20170207
  Serious: Yes (Other)
  Sender: FDA-Public Use
  Company Number: US-JNJFOC-20161123722

PATIENT
  Sex: Female
  Weight: 58.97 kg

DRUGS (2)
  1. PEPCID AC MAXIMUM STRENGTH [Suspect]
     Active Substance: FAMOTIDINE
     Route: 048
  2. PEPCID AC MAXIMUM STRENGTH [Suspect]
     Active Substance: FAMOTIDINE
     Indication: DYSPEPSIA
     Dosage: 1 CAPLET EVERY 3 MONTHS AS NEEDED
     Route: 048

REACTIONS (2)
  - Uterine haemorrhage [Recovered/Resolved]
  - Hallucination [Recovered/Resolved]
